FAERS Safety Report 15688660 (Version 4)
Quarter: 2019Q4

REPORT INFORMATION
  Report Type: Spontaneous
  Country: PT (occurrence: PT)
  Receive Date: 20181205
  Receipt Date: 20191231
  Transmission Date: 20200122
  Serious: Yes (Hospitalization, Other)
  Sender: FDA-Public Use
  Company Number: PT-AUROBINDO-AUR-APL-2018-058752

PATIENT
  Age: 68 Year
  Sex: Male

DRUGS (7)
  1. ZOLEDRONIC ACID SOLUTION FOR INFUSION [Suspect]
     Active Substance: ZOLEDRONIC ACID
     Indication: METASTASES TO BONE
     Dosage: 4 MILLIGRAM, EVERY MONTH
     Route: 042
     Dates: start: 201502, end: 2016
  2. LYSINE [Concomitant]
     Active Substance: LYSINE
     Indication: PRODUCT USED FOR UNKNOWN INDICATION
     Dosage: UNK
     Route: 065
  3. CYPROTERONE ACETATE [Concomitant]
     Active Substance: CYPROTERONE ACETATE
     Indication: PROSTATE CANCER METASTATIC
  4. TRIPTORELIN [Concomitant]
     Active Substance: TRIPTORELIN
     Indication: METASTASES TO BONE
     Dosage: UNK
     Route: 065
     Dates: start: 201502
  5. ZOLEDRONIC ACID SOLUTION FOR INFUSION [Suspect]
     Active Substance: ZOLEDRONIC ACID
     Indication: PROSTATIC ADENOMA
     Dosage: 4 MILLIGRAM, EVERY 4 WEEK (ADMINISTRATION FOR 15 MINUTES)
     Route: 042
     Dates: start: 201502, end: 2016
  6. CYPROTERONE ACETATE [Concomitant]
     Active Substance: CYPROTERONE ACETATE
     Indication: METASTASES TO BONE
     Dosage: UNK
     Route: 065
     Dates: start: 201502
  7. TRIPTORELIN [Concomitant]
     Active Substance: TRIPTORELIN
     Indication: PROSTATE CANCER METASTATIC

REACTIONS (1)
  - Fanconi syndrome acquired [Recovered/Resolved]
